FAERS Safety Report 18597839 (Version 1)
Quarter: 2020Q4

REPORT INFORMATION
  Report Type: Spontaneous
  Country: US (occurrence: US)
  Receive Date: 20201209
  Receipt Date: 20201209
  Transmission Date: 20210114
  Serious: No
  Sender: FDA-Public Use
  Company Number: US-GILEAD-2020-0507736

PATIENT
  Sex: Male

DRUGS (2)
  1. RANEXA [Suspect]
     Active Substance: RANOLAZINE
     Indication: PRODUCT USED FOR UNKNOWN INDICATION
     Dosage: UNK
     Route: 065
     Dates: start: 202011
  2. INSULIN [Concomitant]
     Active Substance: INSULIN NOS

REACTIONS (2)
  - Asthenia [Recovering/Resolving]
  - Blood glucose decreased [Unknown]

NARRATIVE: CASE EVENT DATE: 202011
